FAERS Safety Report 15276077 (Version 1)
Quarter: 2018Q3

REPORT INFORMATION
  Report Type: Spontaneous
  Country: US (occurrence: US)
  Receive Date: 20180727
  Receipt Date: 20180727
  Transmission Date: 20181010
  Serious: No
  Sender: FDA-Public Use
  Company Number: None

PATIENT
  Age: 53 Year
  Sex: Male

DRUGS (14)
  1. LANSOPRAZOLE. [Concomitant]
     Active Substance: LANSOPRAZOLE
  2. DAPSONE. [Suspect]
     Active Substance: DAPSONE
     Indication: PROPHYLAXIS
     Route: 048
     Dates: start: 20180401, end: 20180618
  3. ASPIRIN. [Concomitant]
     Active Substance: ASPIRIN
  4. MORPHINE [Concomitant]
     Active Substance: MORPHINE
  5. SIROLIMUS. [Concomitant]
     Active Substance: SIROLIMUS
  6. ENOXAPARIN [Concomitant]
     Active Substance: ENOXAPARIN
  7. CEFEPIME [Concomitant]
     Active Substance: CEFEPIME HYDROCHLORIDE
  8. CARVEDILOL. [Concomitant]
     Active Substance: CARVEDILOL
  9. LIDOCAINE. [Concomitant]
     Active Substance: LIDOCAINE
  10. SUCRALFATE. [Concomitant]
     Active Substance: SUCRALFATE
  11. METOCLOPRAMIDE. [Concomitant]
     Active Substance: METOCLOPRAMIDE
  12. GABAPENTIN. [Concomitant]
     Active Substance: GABAPENTIN
  13. HYDROMORPHONE [Concomitant]
     Active Substance: HYDROMORPHONE
  14. ONDANSETRON [Concomitant]
     Active Substance: ONDANSETRON

REACTIONS (5)
  - Hypoxia [None]
  - Blood methanol increased [None]
  - Atelectasis [None]
  - Abdominal pain [None]
  - Transaminases increased [None]

NARRATIVE: CASE EVENT DATE: 20180618
